FAERS Safety Report 10213743 (Version 1)
Quarter: 2014Q2

REPORT INFORMATION
  Report Type: Spontaneous
  Country: CN (occurrence: CN)
  Receive Date: 20140603
  Receipt Date: 20140603
  Transmission Date: 20141212
  Serious: Yes (Death, Other)
  Sender: FDA-Public Use
  Company Number: CN-ROXANE LABORATORIES, INC.-2014-RO-00839RO

PATIENT
  Age: 48 Year
  Sex: 0

DRUGS (4)
  1. DEXAMETHASONE [Suspect]
     Indication: PERIPHERAL T-CELL LYMPHOMA UNSPECIFIED
     Route: 065
  2. DEXAMETHASONE [Suspect]
     Indication: PLASMA CELL MYELOMA
  3. BORTEZOMIB [Suspect]
     Indication: PERIPHERAL T-CELL LYMPHOMA UNSPECIFIED
     Route: 065
  4. BORTEZOMIB [Suspect]
     Indication: PLASMA CELL MYELOMA

REACTIONS (7)
  - Respiratory failure [Fatal]
  - Circulatory collapse [Fatal]
  - Electrolyte imbalance [Fatal]
  - Anaemia [Fatal]
  - Abdominal pain [Unknown]
  - Diarrhoea [Unknown]
  - Hypoproteinaemia [Unknown]
